FAERS Safety Report 13398927 (Version 1)
Quarter: 2017Q2

REPORT INFORMATION
  Report Type: Other
  Country: DE (occurrence: DE)
  Receive Date: 20170404
  Receipt Date: 20170404
  Transmission Date: 20170830
  Serious: No
  Sender: FDA-Public Use
  Company Number: DE-LUPIN PHARMACEUTICALS INC.-2016-01319

PATIENT
  Age: 24 Year
  Sex: Female
  Weight: 58.6 kg

DRUGS (6)
  1. ATOSIL [Suspect]
     Active Substance: PROMETHAZINE HYDROCHLORIDE
     Dosage: 30 MG/DAY
     Route: 064
     Dates: end: 20151004
  2. ATOSIL [Suspect]
     Active Substance: PROMETHAZINE HYDROCHLORIDE
     Indication: ACUTE PSYCHOSIS
     Dosage: 50 MG/DAY
     Route: 048
     Dates: start: 20150116
  3. CLOZAPIN [Suspect]
     Active Substance: CLOZAPINE
     Indication: ACUTE PSYCHOSIS
     Dosage: 75 MG,QD,
     Route: 048
     Dates: start: 20150721, end: 20151004
  4. FEMIBION [Concomitant]
     Active Substance: VITAMINS
     Indication: PROPHYLAXIS OF NEURAL TUBE DEFECT
     Dosage: UNK UNK,UNK,UNKNOWN
     Route: 048
     Dates: start: 20150413, end: 20151004
  5. FLUANXOL [Suspect]
     Active Substance: FLUPENTIXOL
     Indication: ACUTE PSYCHOSIS
     Dosage: 2 MG,BID,
     Route: 048
     Dates: start: 20150220, end: 20150720
  6. SERTRALINE [Suspect]
     Active Substance: SERTRALINE HYDROCHLORIDE
     Indication: ACUTE PSYCHOSIS
     Dosage: 100 MG,QD,
     Route: 048
     Dates: start: 20150220, end: 20151004

REACTIONS (2)
  - Pre-eclampsia [Unknown]
  - Exposure during pregnancy [Unknown]
